FAERS Safety Report 6543836-3 (Version None)
Quarter: 2010Q1

REPORT INFORMATION
  Report Type: 
  Country: None (occurrence: None)
  Receive Date: 20100120
  Receipt Date: 20100119
  Transmission Date: 20100710
  Serious: Yes (Death)
  Sender: FDA-Public Use
  Company Number: FR-EISAI INC.-E2020-05871-SPO-FR

PATIENT
  Age: 76 Year
  Sex: Female

DRUGS (10)
  1. ARICEPT [Suspect]
     Route: 048
  2. PAROXETINE HCL [Suspect]
     Indication: DEPRESSION
     Route: 048
  3. KARDEGIC [Suspect]
     Indication: DRUG USE FOR UNKNOWN INDICATION
     Route: 048
  4. RILMENIDINE [Concomitant]
     Route: 048
  5. CLONAZEPAM [Concomitant]
     Indication: ANXIETY
     Route: 048
  6. ANASTROZOLE [Concomitant]
     Route: 048
  7. FUROSEMIDE [Concomitant]
     Route: 048
  8. NEBIVOLOL [Concomitant]
     Route: 048
  9. TELMISARTAN [Concomitant]
     Dosage: 1 TABLET
     Route: 048
     Dates: end: 20090701
  10. LOPERAMIDE [Concomitant]
     Route: 048
     Dates: end: 20090701

REACTIONS (1)
  - GASTROINTESTINAL HAEMORRHAGE [None]
